FAERS Safety Report 21493169 (Version 1)
Quarter: 2022Q4

REPORT INFORMATION
  Report Type: Spontaneous
  Country: US (occurrence: None)
  Receive Date: 20221021
  Receipt Date: 20221021
  Transmission Date: 20230112
  Serious: Yes (Hospitalization)
  Sender: FDA-Public Use
  Company Number: None

PATIENT
  Age: 60 Year
  Sex: Female
  Weight: 74 kg

DRUGS (3)
  1. TAXOTERE [Suspect]
     Active Substance: DOCETAXEL
     Dates: end: 20220805
  2. PERTUZUMAB [Suspect]
     Active Substance: PERTUZUMAB
     Dates: end: 20220805
  3. HERCEPTIN [Suspect]
     Active Substance: TRASTUZUMAB
     Dates: end: 20220805

REACTIONS (18)
  - Pyrexia [None]
  - Abdominal pain lower [None]
  - Chromaturia [None]
  - Dizziness [None]
  - Fall [None]
  - Muscular weakness [None]
  - Hyperacusis [None]
  - Ear discomfort [None]
  - Inability to afford medication [None]
  - Abdominal pain [None]
  - Abdominal rigidity [None]
  - Dehydration [None]
  - Diarrhoea [None]
  - Dizziness [None]
  - Middle ear effusion [None]
  - Supraventricular extrasystoles [None]
  - Cholelithiasis [None]
  - Cholecystitis acute [None]

NARRATIVE: CASE EVENT DATE: 20220913
